FAERS Safety Report 17009082 (Version 1)
Quarter: 2019Q4

REPORT INFORMATION
  Report Type: Spontaneous
  Country: US (occurrence: US)
  Receive Date: 20191108
  Receipt Date: 20191108
  Transmission Date: 20200122
  Serious: Yes (Hospitalization)
  Sender: FDA-Public Use
  Company Number: US-BRAINTREE LABORATORIES-190555-1

PATIENT
  Age: 56 Year
  Sex: Female
  Weight: 63.96 kg

DRUGS (1)
  1. SUPREP BOWEL PREP [Suspect]
     Active Substance: MAGNESIUM SULFATE\POTASSIUM SULFATE\SODIUM SULFATE
     Indication: COLONOSCOPY
     Dosage: 2 X 6 OZ. BOTTLE
     Route: 048
     Dates: start: 20190910, end: 20190911

REACTIONS (7)
  - Flatulence [None]
  - Appendicitis [None]
  - Asthenia [None]
  - Body temperature increased [None]
  - Rheumatoid arthritis [None]
  - Splenomegaly [None]
  - Abdominal pain [None]

NARRATIVE: CASE EVENT DATE: 20190911
